FAERS Safety Report 5345804-6 (Version None)
Quarter: 2007Q2

REPORT INFORMATION
  Report Type: 
  Country: None (occurrence: None)
  Receive Date: 20070426
  Receipt Date: 20060920
  Transmission Date: 20071010
  Serious: Yes (Death)
  Sender: FDA-Public Use
  Company Number: US-JNJFOC-20060905121

PATIENT
  Age: 54 Year
  Sex: Female

DRUGS (5)
  1. ULTRAM [Suspect]
     Indication: DRUG USE FOR UNKNOWN INDICATION
  2. REBIF [Suspect]
     Indication: MULTIPLE SCLEROSIS
     Dates: start: 20060602
  3. LORTAB [Suspect]
     Indication: DRUG USE FOR UNKNOWN INDICATION
     Dosage: GENETIC: ACETAMINOPHEN/HYDROCODONE
  4. LUNESTA [Suspect]
     Indication: DRUG USE FOR UNKNOWN INDICATION
     Dosage: GENERIC: ESZOPICLONE
  5. DEPAKOTE [Suspect]
     Indication: DRUG USE FOR UNKNOWN INDICATION

REACTIONS (1)
  - ACCIDENTAL OVERDOSE [None]
